FAERS Safety Report 4663291-8 (Version None)
Quarter: 2005Q2

REPORT INFORMATION
  Report Type: 
  Country: None (occurrence: None)
  Receive Date: 20050517
  Receipt Date: 20050503
  Transmission Date: 20051028
  Serious: Yes (Hospitalization)
  Sender: FDA-Public Use
  Company Number: US-KINGPHARMUSA00001-K200500576

PATIENT
  Age: 35 Year
  Sex: Female
  Weight: 54 kg

DRUGS (12)
  1. CYTOMEL [Suspect]
     Indication: AUTOIMMUNE THYROIDITIS
     Dosage: 12.5 MCG, QD
     Route: 048
     Dates: start: 20040801
  2. CYTOMEL [Suspect]
     Dosage: 25 MCG, QD
     Route: 048
     Dates: end: 20050301
  3. CYTOMEL [Suspect]
     Dosage: 37.5 MCG, 1.5 TABLET/25MCG QD
     Route: 048
     Dates: start: 20050301, end: 20050401
  4. CYTOMEL [Suspect]
     Dosage: 25 MCG, QD
     Route: 048
     Dates: start: 20050401, end: 20050502
  5. CYTOMEL [Suspect]
     Dosage: 12.5 MCG, QD
     Route: 048
     Dates: start: 20050503
  6. ABILIFY [Suspect]
     Indication: AFFECTIVE DISORDER
     Dosage: 10 MG, QD
     Route: 048
     Dates: start: 20040101
  7. STRATTERA [Suspect]
     Indication: DISTURBANCE IN ATTENTION
     Dosage: 18 MG, 2QD
     Route: 048
     Dates: start: 20030101
  8. LEXAPRO [Suspect]
     Indication: POST-TRAUMATIC STRESS DISORDER
     Dosage: 30 MG, QD
     Route: 048
     Dates: start: 20030901, end: 20041101
  9. LEXAPRO [Suspect]
     Dosage: 2.5 MG, QD
     Route: 048
     Dates: start: 20050201, end: 20050401
  10. LEXAPRO [Suspect]
     Dosage: 5 MG, QD
     Route: 048
     Dates: start: 20050401, end: 20050501
  11. LEXAPRO [Suspect]
     Dosage: 2.5 MG, QD
     Route: 048
     Dates: start: 20050501
  12. KLONOPIN [Suspect]
     Indication: ANXIETY
     Dosage: UNK, UNK
     Route: 048
     Dates: end: 20050401

REACTIONS (10)
  - ANGER [None]
  - AUTOIMMUNE THYROIDITIS [None]
  - BLOOD PRESSURE DECREASED [None]
  - DRUG INTERACTION [None]
  - HEART RATE INCREASED [None]
  - IRRITABILITY [None]
  - LETHARGY [None]
  - MOOD SWINGS [None]
  - OVERDOSE [None]
  - SUICIDAL IDEATION [None]
